FAERS Safety Report 10928309 (Version 1)
Quarter: 2015Q1

REPORT INFORMATION
  Report Type: Spontaneous
  Country: US (occurrence: None)
  Receive Date: 20150203
  Receipt Date: 20150203
  Transmission Date: 20150721
  Serious: Yes (Other)
  Sender: FDA-Public Use
  Company Number: TPA2011A01291

PATIENT
  Age: 55 Year
  Sex: Female
  Weight: 106.6 kg

DRUGS (4)
  1. METFORMIN [Concomitant]
     Active Substance: METFORMIN HYDROCHLORIDE
  2. SIMVASTATIN. [Concomitant]
     Active Substance: SIMVASTATIN
  3. SYNTHROID [Concomitant]
     Active Substance: LEVOTHYROXINE SODIUM
  4. DEXILANT [Suspect]
     Active Substance: DEXLANSOPRAZOLE
     Indication: GASTROOESOPHAGEAL REFLUX DISEASE
     Route: 048
     Dates: start: 20110319, end: 20110324

REACTIONS (8)
  - Dizziness [None]
  - Erythema [None]
  - Pruritus [None]
  - Dyspnoea [None]
  - Oedema peripheral [None]
  - Hypersensitivity [None]
  - Swelling face [None]
  - Wheezing [None]

NARRATIVE: CASE EVENT DATE: 20110319
